FAERS Safety Report 9450141 (Version 1)
Quarter: 2013Q3

REPORT INFORMATION
  Report Type: Spontaneous
  Country: US (occurrence: US)
  Receive Date: 20130809
  Receipt Date: 20130809
  Transmission Date: 20140515
  Serious: Yes (Other)
  Sender: FDA-Public Use
  Company Number: US-BAYER-2013-096788

PATIENT
  Sex: Female

DRUGS (1)
  1. SKYLA [Suspect]
     Indication: CONTRACEPTION
     Dosage: 14 MCG/24HR, CONT
     Route: 015
     Dates: start: 20130718, end: 20130724

REACTIONS (4)
  - Pelvic pain [None]
  - Pyrexia [None]
  - Urinary tract infection [None]
  - Genital haemorrhage [None]
